FAERS Safety Report 20175948 (Version 4)
Quarter: 2022Q1

REPORT INFORMATION
  Report Type: Other
  Country: US (occurrence: None)
  Receive Date: 20211213
  Receipt Date: 20220222
  Transmission Date: 20220423
  Serious: Yes (Death)
  Sender: FDA-Public Use
  Company Number: US-ROCHE-2971744

PATIENT
  Sex: Female
  Weight: 77 kg

DRUGS (6)
  1. ENSPRYNG [Suspect]
     Active Substance: SATRALIZUMAB-MWGE
     Indication: Neuromyelitis optica spectrum disorder
     Dosage: MONTHLY
     Route: 058
     Dates: start: 202008, end: 202110
  2. ANAKINRA [Concomitant]
     Active Substance: ANAKINRA
  3. OLANZAPINE [Concomitant]
     Active Substance: OLANZAPINE
  4. CARBAMAZEPINE [Concomitant]
     Active Substance: CARBAMAZEPINE
  5. ECULIZUMAB [Concomitant]
     Active Substance: ECULIZUMAB
  6. RITUXIMAB [Concomitant]
     Active Substance: RITUXIMAB
     Route: 042
     Dates: start: 20150226, end: 20200627

REACTIONS (1)
  - Encephalitis [Fatal]
